FAERS Safety Report 7414601-X (Version None)
Quarter: 2011Q2

REPORT INFORMATION
  Report Type: 
  Country: None (occurrence: None)
  Receive Date: 20110414
  Receipt Date: 20110408
  Transmission Date: 20111010
  Serious: Yes (Hospitalization)
  Sender: FDA-Public Use
  Company Number: JP-EISAI INC-E2090-01563-SPO-JP

PATIENT
  Age: 79 Year
  Sex: Male

DRUGS (4)
  1. GANATON [Concomitant]
     Dates: end: 20110330
  2. AMLODIN [Concomitant]
     Dates: end: 20110330
  3. ASPIRIN [Concomitant]
     Dates: end: 20110330
  4. EXCEGRAN [Suspect]
     Dosage: 200 MG
     Route: 048
     Dates: start: 20110316, end: 20110330

REACTIONS (2)
  - RHABDOMYOLYSIS [None]
  - GRANULOCYTE COUNT DECREASED [None]
